FAERS Safety Report 24163753 (Version 3)
Quarter: 2024Q4

REPORT INFORMATION
  Report Type: Report from Study
  Country: US (occurrence: US)
  Receive Date: 20240801
  Receipt Date: 20241121
  Transmission Date: 20250115
  Serious: Yes (Hospitalization)
  Sender: ABBVIE
  Company Number: US-ABBVIE-5829385

PATIENT
  Age: 78 Year
  Sex: Male
  Weight: 86 kg

DRUGS (2)
  1. HUMIRA [Suspect]
     Active Substance: ADALIMUMAB
     Indication: Psoriasis
     Route: 058
     Dates: start: 20161014
  2. HUMIRA [Suspect]
     Active Substance: ADALIMUMAB
     Route: 058
     Dates: start: 20240708, end: 20240708

REACTIONS (5)
  - Chronic respiratory disease [Recovering/Resolving]
  - Pneumonia [Unknown]
  - Norovirus infection [Unknown]
  - Ketoacidosis [Unknown]
  - Arthropod infestation [Unknown]

NARRATIVE: CASE EVENT DATE: 20240618
